FAERS Safety Report 5061001-6 (Version None)
Quarter: 2006Q3

REPORT INFORMATION
  Report Type: 
  Country: None (occurrence: None)
  Receive Date: 20060720
  Receipt Date: 20060710
  Transmission Date: 20061208
  Serious: Yes (Hospitalization)
  Sender: FDA-Public Use
  Company Number: 2006-BP-07806RO

PATIENT
  Sex: Male

DRUGS (1)
  1. CLOTRIMAZOLE [Suspect]
     Dosage: 10 MG 5 TIMES/DAY X 7 DAYS (10 MG), BU
     Route: 002
     Dates: start: 20060610

REACTIONS (11)
  - BLOOD GLUCOSE INCREASED [None]
  - CARDIAC DISORDER [None]
  - CIRCUMSTANCE OR INFORMATION CAPABLE OF LEADING TO MEDICATION ERROR [None]
  - DIABETES MELLITUS [None]
  - GENERAL PHYSICAL HEALTH DETERIORATION [None]
  - HEPATIC FAILURE [None]
  - LOSS OF CONSCIOUSNESS [None]
  - MYOCARDIAL INFARCTION [None]
  - PANCREATIC INSUFFICIENCY [None]
  - RENAL FAILURE [None]
  - WRONG TECHNIQUE IN DRUG USAGE PROCESS [None]
